FAERS Safety Report 8601942-3 (Version None)
Quarter: 2012Q3

REPORT INFORMATION
  Report Type: 
  Country: None (occurrence: None)
  Receive Date: 20120817
  Receipt Date: 20120604
  Transmission Date: 20120928
  Serious: No
  Sender: FDA-Public Use
  Company Number: US-BRISTOL-MYERS SQUIBB COMPANY-16664187

PATIENT
  Age: 83 Year
  Sex: Female
  Weight: 59 kg

DRUGS (1)
  1. SPRYCEL [Suspect]
     Indication: LEUKAEMIA
     Dosage: APPROX 6 MONTHS
     Route: 048

REACTIONS (1)
  - NAUSEA [None]
